FAERS Safety Report 5726375-9 (Version None)
Quarter: 2008Q2

REPORT INFORMATION
  Report Type: 
  Country: None (occurrence: None)
  Receive Date: 20080502
  Receipt Date: 20080425
  Transmission Date: 20081010
  Serious: Yes (Hospitalization)
  Sender: FDA-Public Use
  Company Number: DE-AVENTIS-200811147DE

PATIENT
  Age: 75 Year
  Sex: Female

DRUGS (1)
  1. ARAVA [Suspect]
     Dosage: DOSE: NOT PROVIDED
     Route: 048

REACTIONS (2)
  - HYPOGLYCAEMIA [None]
  - SHOCK [None]
